FAERS Safety Report 25621281 (Version 1)
Quarter: 2025Q3

REPORT INFORMATION
  Report Type: Spontaneous
  Country: CN (occurrence: CN)
  Receive Date: 20250730
  Receipt Date: 20250730
  Transmission Date: 20251020
  Serious: Yes (Other)
  Sender: SANOFI AVENTIS
  Company Number: CN-SA-2025SA218911

PATIENT
  Age: 71 Year
  Sex: Female
  Weight: 45 kg

DRUGS (2)
  1. OXALIPLATIN [Suspect]
     Active Substance: OXALIPLATIN
     Indication: Anal cancer
     Dosage: 100 MG, QD
     Route: 065
     Dates: start: 20250722, end: 20250722
  2. DEXTROSE [Concomitant]
     Active Substance: DEXTROSE MONOHYDRATE
     Indication: Anal cancer
     Dosage: 500 ML, QD
     Route: 065
     Dates: start: 20250722, end: 20250722

REACTIONS (1)
  - Hypoaesthesia [Recovering/Resolving]

NARRATIVE: CASE EVENT DATE: 20250722
